FAERS Safety Report 21283592 (Version 1)
Quarter: 2022Q3

REPORT INFORMATION
  Report Type: Spontaneous
  Country: US (occurrence: None)
  Receive Date: 20220901
  Receipt Date: 20220901
  Transmission Date: 20221027
  Serious: No
  Sender: FDA-Public Use
  Company Number: None

PATIENT
  Age: 70 Year
  Sex: Male
  Weight: 72.57 kg

DRUGS (1)
  1. SKYRIZI [Suspect]
     Active Substance: RISANKIZUMAB-RZAA
     Indication: Psoriasis
     Dosage: INJECT 150MG  SUBCUTANEOUSLY  AT WEEK  0 AND WEEK 4  AS DIRECTED?
     Route: 058
     Dates: start: 202110

REACTIONS (3)
  - Fungal infection [None]
  - Product availability issue [None]
  - Therapy interrupted [None]
